FAERS Safety Report 17044597 (Version 1)
Quarter: 2019Q4

REPORT INFORMATION
  Report Type: Spontaneous
  Country: US (occurrence: US)
  Receive Date: 20191118
  Receipt Date: 20191118
  Transmission Date: 20200122
  Serious: No
  Sender: FDA-Public Use
  Company Number: US-BAUSCH-BL-2019-059573

PATIENT
  Age: 47 Year
  Sex: Male

DRUGS (1)
  1. DUOBRII [Suspect]
     Active Substance: HALOBETASOL PROPIONATE\TAZAROTENE
     Indication: PSORIASIS
     Dosage: STRENGTH: 0.01/0.045 PERCENT, 1 APPLICATION ON THE PALM OF HIS HANDS AND FINGERS DAILY
     Route: 061
     Dates: start: 201909

REACTIONS (3)
  - Skin exfoliation [Unknown]
  - Accidental exposure to product [Unknown]
  - Genital erythema [Unknown]
